FAERS Safety Report 12389167 (Version 2)
Quarter: 2016Q3

REPORT INFORMATION
  Report Type: Spontaneous
  Country: JP (occurrence: JP)
  Receive Date: 20160520
  Receipt Date: 20160720
  Transmission Date: 20161109
  Serious: Yes (Hospitalization)
  Sender: FDA-Public Use
  Company Number: JP-PFIZER INC-2016254157

PATIENT
  Age: 54 Year
  Sex: Male
  Weight: 78 kg

DRUGS (6)
  1. BOSULIF [Suspect]
     Active Substance: BOSUTINIB MONOHYDRATE
     Dosage: 400 UNK, UNK
     Route: 048
     Dates: start: 20150722, end: 20150805
  2. BOSULIF [Suspect]
     Active Substance: BOSUTINIB MONOHYDRATE
     Indication: CHRONIC MYELOID LEUKAEMIA
     Dosage: 300 MG, 1X/DAY
     Route: 048
     Dates: start: 20150624, end: 20150721
  3. BOSULIF [Suspect]
     Active Substance: BOSUTINIB MONOHYDRATE
     Dosage: 500 UNK, UNK
     Route: 048
     Dates: start: 20150806
  4. REBAMIPIDE [Concomitant]
     Active Substance: REBAMIPIDE
     Indication: ABDOMINAL PAIN UPPER
     Dosage: 100 MG, 3X/DAY
     Route: 048
     Dates: start: 20150714
  5. NEXIUM [Concomitant]
     Active Substance: ESOMEPRAZOLE MAGNESIUM
     Indication: ABDOMINAL PAIN UPPER
     Dosage: 20 MG, 1X/DAY
     Route: 048
     Dates: start: 20150714
  6. REBAMIPIDE [Concomitant]
     Active Substance: REBAMIPIDE
     Dosage: UNK

REACTIONS (2)
  - Cerebellar infarction [Recovered/Resolved]
  - Diarrhoea [Recovering/Resolving]

NARRATIVE: CASE EVENT DATE: 20150624
